FAERS Safety Report 20024937 (Version 2)
Quarter: 2021Q4

REPORT INFORMATION
  Report Type: Spontaneous
  Country: US (occurrence: US)
  Receive Date: 20211102
  Receipt Date: 20211217
  Transmission Date: 20220303
  Serious: No
  Sender: FDA-Public Use
  Company Number: US-BEH-2021137317

PATIENT
  Sex: Female
  Weight: 68.027 kg

DRUGS (1)
  1. HIZENTRA [Suspect]
     Active Substance: HUMAN IMMUNOGLOBULIN G
     Indication: Immunodeficiency common variable
     Dosage: 12 GRAM, QOW
     Route: 058
     Dates: start: 20190327

REACTIONS (4)
  - Weight fluctuation [Unknown]
  - Infection [Unknown]
  - Decreased appetite [Unknown]
  - Dyspnoea [Unknown]
